FAERS Safety Report 25660465 (Version 1)
Quarter: 2025Q3

REPORT INFORMATION
  Report Type: Report from Study
  Country: EU (occurrence: EU)
  Receive Date: 20250808
  Receipt Date: 20250808
  Transmission Date: 20251021
  Serious: Yes (Other)
  Sender: ALEXION PHARMACEUTICALS
  Company Number: EU-AstraZeneca-2023A125324

PATIENT
  Age: 12 Year
  Sex: Female
  Weight: 36 kg

DRUGS (7)
  1. SELUMETINIB [Suspect]
     Active Substance: SELUMETINIB
     Indication: Neurofibromatosis
     Dosage: 25 MILLIGRAM, BID
     Dates: start: 20221028, end: 20230112
  2. SELUMETINIB [Suspect]
     Active Substance: SELUMETINIB
     Dosage: 25 MILLIGRAM, BID
     Dates: start: 20230127, end: 20230719
  3. SELUMETINIB [Suspect]
     Active Substance: SELUMETINIB
     Dosage: 35 MILLIGRAM, BID
     Dates: start: 20230728, end: 20240404
  4. SELUMETINIB [Suspect]
     Active Substance: SELUMETINIB
     Dosage: 10 MILLIGRAM, BID
     Dates: start: 20240405, end: 20240711
  5. SELUMETINIB [Suspect]
     Active Substance: SELUMETINIB
     Dosage: 35 MILLIGRAM, BID
     Dates: start: 20240712
  6. METHYLPHENIDATE [Concomitant]
     Active Substance: METHYLPHENIDATE
     Indication: Attention deficit hyperactivity disorder
     Dosage: 18 MILLIGRAM, QD
     Dates: start: 20221229
  7. FERROUS SULFATE [Concomitant]
     Active Substance: FERROUS SULFATE
     Indication: Iron deficiency
     Dosage: 247.25 MILLIGRAM, QD
     Dates: start: 20231124

REACTIONS (1)
  - Neutropenia [Recovered/Resolved]

NARRATIVE: CASE EVENT DATE: 20230526
